FAERS Safety Report 9517261 (Version 2)
Quarter: 2014Q3

REPORT INFORMATION
  Report Type: Spontaneous
  Country: US (occurrence: US)
  Receive Date: 20130911
  Receipt Date: 20140814
  Transmission Date: 20150326
  Serious: Yes (Hospitalization, Other)
  Sender: FDA-Public Use
  Company Number: US-009507513-1309USA003640

PATIENT
  Sex: Female

DRUGS (1)
  1. NUVARING [Suspect]
     Active Substance: ETHINYL ESTRADIOL\ETONOGESTREL
     Indication: CONTRACEPTION
     Dosage: UNK
     Route: 067
     Dates: start: 20110329, end: 20110909

REACTIONS (8)
  - Pulmonary embolism [Unknown]
  - Constipation [Unknown]
  - Generalised anxiety disorder [Unknown]
  - Pulmonary infarction [Unknown]
  - Anticoagulation drug level below therapeutic [Unknown]
  - Pulmonary embolism [Unknown]
  - Adrenal calcification [Unknown]
  - Breast disorder [Unknown]

NARRATIVE: CASE EVENT DATE: 20110904
